FAERS Safety Report 5422794-9 (Version None)
Quarter: 2007Q3

REPORT INFORMATION
  Report Type: 
  Country: None (occurrence: None)
  Receive Date: 20070730
  Receipt Date: 20060727
  Transmission Date: 20080115
  Serious: Yes (Disabling)
  Sender: FDA-Public Use
  Company Number: 200613062BWH

PATIENT
  Age: 75 Year
  Sex: Female
  Weight: 57.6068 kg

DRUGS (2)
  1. AVELOX [Suspect]
     Indication: NASOPHARYNGITIS
     Dosage: 400 MG, QD; ORAL
     Route: 048
     Dates: start: 20051119, end: 20051123
  2. FLU SHOT (INFLUENZA VACCINE (INFLUENZA VACCINE) [Suspect]
     Dosage: ONCE,
     Dates: start: 20051101

REACTIONS (2)
  - AGEUSIA [None]
  - ANOSMIA [None]
